FAERS Safety Report 20499729 (Version 1)
Quarter: 2022Q1

REPORT INFORMATION
  Report Type: Spontaneous
  Country: US (occurrence: US)
  Receive Date: 20220222
  Receipt Date: 20220222
  Transmission Date: 20220423
  Serious: No
  Sender: FDA-Public Use
  Company Number: US-UCBSA-2020054844

PATIENT
  Age: 30 Year
  Sex: Male

DRUGS (4)
  1. LEVETIRACETAM [Suspect]
     Active Substance: LEVETIRACETAM
     Indication: Seizure prophylaxis
  2. LORAZEPAM [Concomitant]
     Active Substance: LORAZEPAM
     Indication: Seizure prophylaxis
  3. PHENYTOIN [Concomitant]
     Active Substance: PHENYTOIN
     Indication: Seizure prophylaxis
  4. ACYCLOVIR [Concomitant]
     Active Substance: ACYCLOVIR
     Indication: Product used for unknown indication

REACTIONS (2)
  - Hallucination, auditory [Unknown]
  - Product use in unapproved indication [Unknown]
